FAERS Safety Report 13950033 (Version 2)
Quarter: 2017Q4

REPORT INFORMATION
  Report Type: Spontaneous
  Country: JP (occurrence: JP)
  Receive Date: 20170908
  Receipt Date: 20171009
  Transmission Date: 20180320
  Serious: Yes (Other)
  Sender: FDA-Public Use
  Company Number: JP-CONCORDIA PHARMACEUTICALS INC.-E2B_00008363

PATIENT
  Age: 59 Year
  Sex: Male

DRUGS (8)
  1. PREDNISOLONE. [Suspect]
     Active Substance: PREDNISOLONE
     Indication: POLYARTERITIS NODOSA
  2. PREDNISOLONE. [Suspect]
     Active Substance: PREDNISOLONE
  3. PREDNISOLONE. [Suspect]
     Active Substance: PREDNISOLONE
  4. PREDNISOLONE. [Suspect]
     Active Substance: PREDNISOLONE
  5. AZATHIOPRINE. [Suspect]
     Active Substance: AZATHIOPRINE
     Indication: POLYARTERITIS NODOSA
  6. PREDNISOLONE. [Suspect]
     Active Substance: PREDNISOLONE
     Dosage: LESS THAN 15 MG
  7. TACROLIMUS. [Concomitant]
     Active Substance: TACROLIMUS
  8. INTRAVENOUS CYCLOPHOSPHAMIDE [Concomitant]
     Dosage: PULSE THERAPY

REACTIONS (1)
  - Condition aggravated [Recovered/Resolved]
